FAERS Safety Report 19754148 (Version 1)
Quarter: 2021Q3

REPORT INFORMATION
  Report Type: Spontaneous
  Country: US (occurrence: US)
  Receive Date: 20210824
  Receipt Date: 20210824
  Transmission Date: 20211014
  Serious: No
  Sender: FDA-Public Use
  Company Number: None

PATIENT

DRUGS (2)
  1. KYNAMRO [Suspect]
     Active Substance: MIPOMERSEN SODIUM
  2. SYNVISC [Suspect]
     Active Substance: HYLAN G-F 20

REACTIONS (3)
  - Product barcode issue [None]
  - Circumstance or information capable of leading to medication error [None]
  - Wrong drug [None]
